FAERS Safety Report 23639725 (Version 1)
Quarter: 2024Q1

REPORT INFORMATION
  Report Type: Spontaneous
  Country: US (occurrence: US)
  Receive Date: 20240316
  Receipt Date: 20240316
  Transmission Date: 20240410
  Serious: Yes (Hospitalization, Other)
  Sender: FDA-Public Use
  Company Number: US-drreddys-SPO/USA/23/0170480

PATIENT
  Age: 67 Year
  Sex: Male

DRUGS (2)
  1. TACROLIMUS [Suspect]
     Active Substance: TACROLIMUS
     Indication: Product used for unknown indication
  2. SIROLIMUS [Suspect]
     Active Substance: SIROLIMUS
     Indication: Prophylaxis against transplant rejection

REACTIONS (4)
  - Nephropathy toxic [Unknown]
  - Organising pneumonia [Recovering/Resolving]
  - Pulmonary toxicity [Recovering/Resolving]
  - Pneumothorax [Recovering/Resolving]
